FAERS Safety Report 21292973 (Version 1)
Quarter: 2022Q3

REPORT INFORMATION
  Report Type: Spontaneous
  Country: MA (occurrence: MA)
  Receive Date: 20220905
  Receipt Date: 20220905
  Transmission Date: 20221026
  Serious: Yes (Life-Threatening)
  Sender: FDA-Public Use
  Company Number: MA-SUN PHARMACEUTICAL INDUSTRIES LTD-2022R1-353295

PATIENT
  Age: 47 Year
  Sex: Male

DRUGS (3)
  1. DOCETAXEL [Suspect]
     Active Substance: DOCETAXEL
     Indication: Nasopharyngeal cancer
     Dosage: 75 MILLIGRAM/SQ. METER ON DAY 1 (1 HOUR PERFUSION) 3 CYCLES
     Route: 065
  2. CISPLATIN [Suspect]
     Active Substance: CISPLATIN
     Indication: Nasopharyngeal cancer
     Dosage: 75 MILLIGRAM/SQ. METER ON DAY 1 (1 HOUR PERF USION) 3 CYCLES
     Route: 065
  3. FLUOROURACIL [Suspect]
     Active Substance: FLUOROURACIL
     Indication: Nasopharyngeal cancer
     Dosage: 750 MILLIGRAM/SQ. METER ON DAY 1 TO DAY 5 AS A CONTINUOUS PERFU SION WITH A PUMP 3 CYCLES
     Route: 065

REACTIONS (1)
  - Neoplasm progression [Unknown]
